FAERS Safety Report 12718217 (Version 3)
Quarter: 2018Q3

REPORT INFORMATION
  Report Type: Report from Study
  Country: DE (occurrence: DE)
  Receive Date: 20160906
  Receipt Date: 20180926
  Transmission Date: 20181010
  Serious: Yes (Hospitalization)
  Sender: FDA-Public Use
  Company Number: DE-SA-2016SA160429

PATIENT
  Age: 75 Year
  Sex: Male
  Weight: 58 kg

DRUGS (5)
  1. AFLIBERCEPT [Suspect]
     Active Substance: AFLIBERCEPT
     Indication: COLORECTAL CANCER METASTATIC
     Dosage: 232 MG,QCY
     Route: 042
     Dates: start: 20160623, end: 20160623
  2. AFLIBERCEPT [Suspect]
     Active Substance: AFLIBERCEPT
     Dosage: 4 MG/KG,QCY
     Route: 042
     Dates: start: 20160502, end: 20160502
  3. IRINOTECAN [Concomitant]
     Active Substance: IRINOTECAN
     Indication: COLORECTAL CANCER METASTATIC
     Dosage: UNK UNK,QCY
     Route: 042
  4. FLUOROURACIL. [Concomitant]
     Active Substance: FLUOROURACIL
     Indication: COLORECTAL CANCER METASTATIC
     Dosage: UNK UNK,QCY
     Route: 042
  5. FOLINIC ACID [Concomitant]
     Active Substance: LEUCOVORIN
     Indication: COLORECTAL CANCER METASTATIC
     Dosage: UNK UNK,QCY
     Route: 042

REACTIONS (3)
  - Pyrexia [Recovered/Resolved]
  - Pneumonitis [Recovered/Resolved]
  - Atypical pneumonia [Unknown]

NARRATIVE: CASE EVENT DATE: 20160704
